FAERS Safety Report 12573682 (Version 7)
Quarter: 2017Q1

REPORT INFORMATION
  Report Type: Report from Study
  Country: US (occurrence: US)
  Receive Date: 20160720
  Receipt Date: 20170105
  Transmission Date: 20170428
  Serious: No
  Sender: FDA-Public Use
  Company Number: PHEH2016US017968

PATIENT
  Age: 52 Year
  Sex: Female

DRUGS (1)
  1. GILENYA [Suspect]
     Active Substance: FINGOLIMOD HYDROCHLORIDE
     Indication: MULTIPLE SCLEROSIS
     Dosage: 0.5 MG, QD
     Route: 048
     Dates: start: 20160715, end: 201611

REACTIONS (9)
  - Sleep terror [Unknown]
  - Hallucination, visual [Unknown]
  - Nausea [Recovered/Resolved]
  - Dyspnoea [Unknown]
  - Gastrooesophageal reflux disease [Unknown]
  - Pain in extremity [Unknown]
  - Muscular weakness [Unknown]
  - Extrasystoles [Unknown]
  - Fatigue [Recovered/Resolved]

NARRATIVE: CASE EVENT DATE: 201607
